FAERS Safety Report 8462337-9 (Version None)
Quarter: 2012Q2

REPORT INFORMATION
  Report Type: 
  Country: None (occurrence: None)
  Receive Date: 20120625
  Receipt Date: 20120613
  Transmission Date: 20120825
  Serious: Yes (Other)
  Sender: FDA-Public Use
  Company Number: JP-VERTEX PHARMACEUTICALS INC.-AE-2012-008896

PATIENT
  Age: 49 Year
  Sex: Male

DRUGS (9)
  1. PEGINTERFERON ALFA-2B [Concomitant]
     Indication: HEPATITIS C
     Route: 058
     Dates: end: 20120419
  2. PEGINTERFERON ALFA-2B [Concomitant]
     Route: 058
     Dates: start: 20120426
  3. MYONAL [Concomitant]
     Route: 048
     Dates: start: 20120510
  4. LAC-B [Concomitant]
     Route: 048
     Dates: start: 20120426
  5. TELAVIC (TELAPREVIR) [Suspect]
     Indication: HEPATITIS C
     Route: 048
     Dates: start: 20120412
  6. VITAMIN B12 [Concomitant]
     Route: 048
     Dates: start: 20120419
  7. RIBAVIRIN [Concomitant]
     Route: 048
  8. MS ONSHIPPU [Concomitant]
     Route: 061
     Dates: start: 20120502
  9. PEGINTERFERON ALFA-2B [Concomitant]
     Route: 058
     Dates: start: 20120419

REACTIONS (1)
  - NEUTROPHIL COUNT DECREASED [None]
